FAERS Safety Report 6927601-0 (Version None)
Quarter: 2010Q3

REPORT INFORMATION
  Report Type: 
  Country: None (occurrence: None)
  Receive Date: 20100817
  Receipt Date: 20100528
  Transmission Date: 20110219
  Serious: Yes (Death, Other)
  Sender: FDA-Public Use
  Company Number: US-BAYER-201028403GPV

PATIENT

DRUGS (11)
  1. ALEMTUZUMAB [Suspect]
     Indication: CHRONIC LYMPHOCYTIC LEUKAEMIA
     Dosage: TOTAL DAILY DOSE: 3 MG
     Route: 058
  2. ALEMTUZUMAB [Suspect]
     Dosage: TOTAL DAILY DOSE: 10 MG
     Route: 058
  3. ALEMTUZUMAB [Suspect]
     Dosage: TOTAL DAILY DOSE: 30 MG
     Route: 058
  4. ALEMTUZUMAB [Suspect]
     Dosage: FOR 6 WEEKS (18 TOTAL DOSES)
     Route: 058
  5. FLUDARABINE [Suspect]
     Indication: CHRONIC LYMPHOCYTIC LEUKAEMIA
     Dosage: ON DAYS 1-5, REPEATED EVERY 28 DAYS UP TO 6 CYCLES
     Route: 042
  6. RITUXIMAB [Suspect]
     Indication: CHRONIC LYMPHOCYTIC LEUKAEMIA
     Dosage: ON DAY 3 OF CYCLE 1
     Route: 042
  7. RITUXIMAB [Suspect]
     Dosage: ON DAY 1 OF CYCLE 1
     Route: 042
  8. RITUXIMAB [Suspect]
     Dosage: ON DAY 5 OF CYCLE 1
     Route: 042
  9. RITUXIMAB [Suspect]
     Dosage: DAY 1 OF CYCLES 2-6, REPEATED EVERY 28 DAYS UP TO 6 CYCLES
     Route: 042
  10. ANTIVIRALS NOS [Concomitant]
     Indication: ANTIVIRAL PROPHYLAXIS
  11. ANTIFUNGALS NOS [Concomitant]
     Indication: ANTIFUNGAL PROPHYLAXIS

REACTIONS (5)
  - ACUTE RESPIRATORY DISTRESS SYNDROME [None]
  - MULTI-ORGAN FAILURE [None]
  - PANCYTOPENIA [None]
  - PNEUMONIA LEGIONELLA [None]
  - RENAL FAILURE ACUTE [None]
